FAERS Safety Report 11846075 (Version 1)
Quarter: 2015Q4

REPORT INFORMATION
  Report Type: Spontaneous
  Country: CA (occurrence: CA)
  Receive Date: 20151217
  Receipt Date: 20151217
  Transmission Date: 20160305
  Serious: Yes (Other)
  Sender: FDA-Public Use
  Company Number: CA-TEVA-619239ACC

PATIENT
  Age: 79 Year
  Sex: Male
  Weight: 103.06 kg

DRUGS (9)
  1. PLAVIX [Concomitant]
     Active Substance: CLOPIDOGREL BISULFATE
  2. ASA [Concomitant]
     Active Substance: ASPIRIN
  3. CRESTOR [Concomitant]
     Active Substance: ROSUVASTATIN CALCIUM
  4. PARIET [Concomitant]
     Active Substance: RABEPRAZOLE SODIUM
  5. LOSARTAN. [Suspect]
     Active Substance: LOSARTAN
     Indication: HYPERTENSION
     Route: 048
  6. METFORMIN [Concomitant]
     Active Substance: METFORMIN HYDROCHLORIDE
  7. ELIQUIS FILM-COATED [Concomitant]
  8. DIGOXIN. [Concomitant]
     Active Substance: DIGOXIN
  9. HCTZ [Concomitant]
     Active Substance: HYDROCHLOROTHIAZIDE

REACTIONS (3)
  - Product substitution issue [Recovered/Resolved]
  - Pallor [Recovered/Resolved]
  - Dizziness [Recovered/Resolved]
